FAERS Safety Report 13528769 (Version 1)
Quarter: 2017Q2

REPORT INFORMATION
  Report Type: Spontaneous
  Country: US (occurrence: US)
  Receive Date: 20170509
  Receipt Date: 20170509
  Transmission Date: 20170830
  Serious: No
  Sender: FDA-Public Use
  Company Number: US-UCBSA-2017010173

PATIENT
  Sex: Female

DRUGS (2)
  1. BRIVIACT [Suspect]
     Active Substance: BRIVARACETAM
     Indication: SEIZURE
     Dosage: 25 MG, 2X/DAY (BID)
  2. BRIVIACT [Suspect]
     Active Substance: BRIVARACETAM
     Dosage: 50 MG, 2X/DAY (BID)

REACTIONS (4)
  - Nausea [Recovered/Resolved]
  - Vomiting [Recovered/Resolved]
  - Somnolence [Recovered/Resolved]
  - Dizziness [Recovered/Resolved]
